FAERS Safety Report 12340206 (Version 1)
Quarter: 2016Q2

REPORT INFORMATION
  Report Type: Report from Study
  Country: CZ (occurrence: CZ)
  Receive Date: 20160506
  Receipt Date: 20160506
  Transmission Date: 20160815
  Serious: Yes (Hospitalization)
  Sender: FDA-Public Use
  Company Number: CZ-ROCHE-1752820

PATIENT
  Sex: Female

DRUGS (7)
  1. PROPYCIL [Concomitant]
     Active Substance: PROPYLTHIOURACIL
  2. MILURIT [Concomitant]
     Active Substance: ALLOPURINOL
  3. RANIBIZUMAB [Suspect]
     Active Substance: RANIBIZUMAB
     Indication: NEOVASCULAR AGE-RELATED MACULAR DEGENERATION
     Route: 065
     Dates: start: 20150612, end: 20150612
  4. SORTIS [Concomitant]
     Active Substance: ATORVASTATIN
  5. LOZAP (CZECH REPUBLIC) [Concomitant]
  6. VIGANTOL [Concomitant]
  7. WARFARIN [Concomitant]
     Active Substance: WARFARIN

REACTIONS (1)
  - Embolic stroke [Recovering/Resolving]
